FAERS Safety Report 6667531-5 (Version None)
Quarter: 2010Q2

REPORT INFORMATION
  Report Type: 
  Country: None (occurrence: None)
  Receive Date: 20100405
  Receipt Date: 20100401
  Transmission Date: 20101027
  Serious: Yes (Other)
  Sender: FDA-Public Use
  Company Number: FR-ROCHE-694735

PATIENT
  Sex: Male

DRUGS (2)
  1. ROCEPHIN [Suspect]
     Route: 030
     Dates: start: 20100314, end: 20100319
  2. OFLOCET [Suspect]
     Dosage: DIVISIBLE COATED TABLET
     Route: 048
     Dates: start: 20100314, end: 20100319

REACTIONS (1)
  - BLOOD CREATINE PHOSPHOKINASE INCREASED [None]
